FAERS Safety Report 5906753-5 (Version None)
Quarter: 2008Q3

REPORT INFORMATION
  Report Type: 
  Country: None (occurrence: None)
  Receive Date: 20080930
  Receipt Date: 20080919
  Transmission Date: 20090109
  Serious: Yes (Hospitalization, Other)
  Sender: FDA-Public Use
  Company Number: GXKR2008BR09022

PATIENT
  Age: 62 Year
  Sex: Male

DRUGS (4)
  1. DIAZEPAM [Suspect]
  2. HALOPERIDOL [Suspect]
  3. PROMETHAZINE [Suspect]
  4. ALCOHOL (ETHANOL) [Concomitant]

REACTIONS (3)
  - MEGACOLON [None]
  - VOLVULUS [None]
  - WEIGHT DECREASED [None]
